FAERS Safety Report 7531636-7 (Version None)
Quarter: 2011Q2

REPORT INFORMATION
  Report Type: 
  Country: None (occurrence: None)
  Receive Date: 20110608
  Receipt Date: 20110128
  Transmission Date: 20111010
  Serious: Yes (Hospitalization, Other)
  Sender: FDA-Public Use
  Company Number: US-BAYER-201024973NA

PATIENT
  Age: 30 Year
  Sex: Female
  Weight: 101.59 kg

DRUGS (8)
  1. ALLEGRA D 24 HOUR [Concomitant]
     Dosage: UNK UNK, QD
     Route: 048
  2. YAZ [Suspect]
     Dosage: UNK
     Dates: start: 20070726, end: 20080208
  3. PHENAZOPYRIDINE HCL TAB [Concomitant]
  4. SYNTHROID [Concomitant]
     Dosage: 125 MCG/24HR, QD
     Route: 048
  5. YASMIN [Suspect]
     Indication: CONTRACEPTION
     Route: 048
     Dates: start: 20070501, end: 20080315
  6. CIPROFLOXACIN HCL [Concomitant]
  7. YAZ [Suspect]
     Indication: CONTRACEPTION
     Route: 048
     Dates: start: 20070501, end: 20080315
  8. NEXIUM [Concomitant]
     Dosage: 40 MG, UNK
     Route: 048

REACTIONS (8)
  - GALLBLADDER DISORDER [None]
  - CHEST PAIN [None]
  - CHOLELITHIASIS [None]
  - NAUSEA [None]
  - GASTROOESOPHAGEAL REFLUX DISEASE [None]
  - PAIN [None]
  - VOMITING [None]
  - CHOLECYSTITIS CHRONIC [None]
